FAERS Safety Report 10172939 (Version 2)
Quarter: 2014Q2

REPORT INFORMATION
  Report Type: Other
  Country: US (occurrence: US)
  Receive Date: 20140515
  Receipt Date: 20140515
  Transmission Date: 20141212
  Serious: No
  Sender: FDA-Public Use
  Company Number: US-LUPIN PHARMACEUTICALS INC.-2014-00878

PATIENT
  Sex: Male
  Weight: 104.42 kg

DRUGS (2)
  1. AMLODIPINE BESYLATE AND BENAZEPRIL HYDROCHLORIDE CAPSULES10MG/40MG [Suspect]
     Indication: HYPERTENSION
     Dates: start: 201402
  2. AMLODIPINE BESYLATE AND BENAZEPRIL HYDROCHLORIDE CAPSULES [Suspect]
     Dates: start: 201403

REACTIONS (5)
  - Drug ineffective [Unknown]
  - Dizziness [Unknown]
  - Fatigue [Unknown]
  - Product substitution issue [Unknown]
  - Hypertension [Recovered/Resolved]
